FAERS Safety Report 24625947 (Version 3)
Quarter: 2024Q4

REPORT INFORMATION
  Report Type: Spontaneous
  Country: US (occurrence: US)
  Receive Date: 20241115
  Receipt Date: 20241209
  Transmission Date: 20250114
  Serious: No
  Sender: PFIZER
  Company Number: US-PFIZER INC-202400300189

PATIENT
  Age: 74 Year
  Sex: Female
  Weight: 48.99 kg

DRUGS (1)
  1. PAXLOVID [Suspect]
     Active Substance: NIRMATRELVIR\RITONAVIR
     Indication: COVID-19 treatment
     Dosage: [NIRMATRELVIR 300 MG]/[RITONAVIR 100 MG]; 2X/DAY
     Route: 048
     Dates: start: 20241109, end: 20241112

REACTIONS (8)
  - Abdominal discomfort [Recovered/Resolved]
  - Oropharyngeal pain [Recovered/Resolved]
  - Sensation of foreign body [Recovered/Resolved]
  - Tonsillar hypertrophy [Recovered/Resolved]
  - Oesophageal discomfort [Recovered/Resolved]
  - Dyspnoea [Recovered/Resolved]
  - Dysgeusia [Recovered/Resolved]
  - Decreased appetite [Recovered/Resolved]

NARRATIVE: CASE EVENT DATE: 20241109
